FAERS Safety Report 14933933 (Version 9)
Quarter: 2018Q4

REPORT INFORMATION
  Report Type: Report from Study
  Country: CO (occurrence: CO)
  Receive Date: 20180524
  Receipt Date: 20181022
  Transmission Date: 20190204
  Serious: Yes (Hospitalization, Other)
  Sender: FDA-Public Use
  Company Number: PHHY2018CO004983

PATIENT
  Age: 44 Year
  Sex: Female
  Weight: 52 kg

DRUGS (8)
  1. SIGNIFOR [Suspect]
     Active Substance: PASIREOTIDE
     Dosage: 0.6 MG, QD (2 AMPOULES DAILY)
     Route: 058
     Dates: start: 20180425
  2. INSULIN [Concomitant]
     Active Substance: INSULIN NOS
     Indication: DIABETES MELLITUS
     Dosage: 3 TIMES A DAY
     Route: 065
  3. SIGNIFOR [Suspect]
     Active Substance: PASIREOTIDE
     Dosage: 0.6 MG, Q12H
     Route: 058
     Dates: start: 20180515
  4. HYDROCHLOORTHIAZIDE [Concomitant]
     Active Substance: HYDROCHLOROTHIAZIDE
     Indication: HYPERTENSION
     Dosage: 20 MG, QD
     Route: 065
  5. SIGNIFOR [Suspect]
     Active Substance: PASIREOTIDE
     Indication: PITUITARY-DEPENDENT CUSHING^S SYNDROME
     Dosage: 0.6 MG, BID (IN THE MORNING AND AT NIGHT)
     Route: 058
  6. METFORMIN [Suspect]
     Active Substance: METFORMIN HYDROCHLORIDE
     Indication: DIABETES MELLITUS
     Dosage: TWO DAILY
     Route: 065
  7. ENALAPRIL [Concomitant]
     Active Substance: ENALAPRIL
     Indication: HYPERTENSION
     Dosage: 20 MG, BID
     Route: 065
  8. SIGNIFOR [Suspect]
     Active Substance: PASIREOTIDE
     Dosage: 0.6 MG, Q12H
     Route: 058
     Dates: start: 20180508

REACTIONS (11)
  - Inappropriate schedule of product administration [Unknown]
  - Diarrhoea [Recovered/Resolved]
  - Drug intolerance [Unknown]
  - Dehydration [Recovered/Resolved]
  - Pyrexia [Unknown]
  - Pituitary-dependent Cushing^s syndrome [Unknown]
  - Hypotension [Unknown]
  - Dizziness [Recovered/Resolved]
  - General physical health deterioration [Unknown]
  - Vomiting [Recovered/Resolved]
  - Malaise [Not Recovered/Not Resolved]

NARRATIVE: CASE EVENT DATE: 20180425
